FAERS Safety Report 5305994-8 (Version None)
Quarter: 2007Q2

REPORT INFORMATION
  Report Type: 
  Country: None (occurrence: None)
  Receive Date: 20070420
  Receipt Date: 20070420
  Transmission Date: 20071010
  Serious: No
  Sender: FDA-Public Use
  Company Number: None

PATIENT
  Sex: Female
  Weight: 56.4 kg

DRUGS (13)
  1. CYCLOPHOSPHAMIDE [Suspect]
     Dosage: 966 MG
  2. DOXIL [Suspect]
     Dosage: 56 MG
  3. NEULASTA [Suspect]
     Dosage: 6 MG
  4. PREDNISONE TAB [Suspect]
     Dosage: 60 MG
  5. RITUXIMAB (MOAB C2B8 ANTI CD20 CHIMERIC) [Suspect]
     Dosage: 604 MG
  6. VINCRISTINE SULFATE [Suspect]
     Dosage: 2 MG
  7. AVELOX [Concomitant]
  8. DARVON [Concomitant]
  9. FLAGYL [Concomitant]
  10. MULTI-VITAMIN [Concomitant]
  11. NATURE THYROID [Concomitant]
  12. NEXIUM [Concomitant]
  13. ZOFRAN [Concomitant]

REACTIONS (2)
  - FATIGUE [None]
  - NEUTROPENIA [None]
